FAERS Safety Report 6731350-1 (Version None)
Quarter: 2010Q2

REPORT INFORMATION
  Report Type: 
  Country: None (occurrence: None)
  Receive Date: 20100517
  Receipt Date: 20100517
  Transmission Date: 20101027
  Serious: No
  Sender: FDA-Public Use
  Company Number: None

PATIENT
  Age: 62 Year
  Sex: Female
  Weight: 72.5755 kg

DRUGS (1)
  1. LATISSE [Suspect]
     Indication: MADAROSIS
     Dosage: ONE DROP EA EYELASH BASE EACH EVENING
     Dates: start: 20100511, end: 20100514

REACTIONS (3)
  - ERYTHEMA OF EYELID [None]
  - EYE PAIN [None]
  - OCULAR ICTERUS [None]
